FAERS Safety Report 5190563-3 (Version None)
Quarter: 2006Q4

REPORT INFORMATION
  Report Type: 
  Country: None (occurrence: None)
  Receive Date: 20061222
  Receipt Date: 20061214
  Transmission Date: 20070319
  Serious: Yes (Hospitalization)
  Sender: FDA-Public Use
  Company Number: US-JNJFOC-20061006344

PATIENT
  Sex: Male

DRUGS (15)
  1. INFLIXIMAB [Suspect]
     Indication: RHEUMATOID ARTHRITIS
     Route: 042
  2. CALCIUM [Concomitant]
  3. COZAAR [Concomitant]
  4. ASPIRIN [Concomitant]
  5. FOLIC ACID [Concomitant]
  6. FOSAMAX [Concomitant]
  7. LANOXIN [Concomitant]
  8. ISOCORBIDE [Concomitant]
  9. METHOTREXATE [Concomitant]
  10. METOPROLOL SUCCINATE [Concomitant]
  11. PREDNISONE TAB [Concomitant]
  12. FLOMAX [Concomitant]
  13. COMBIVENT [Concomitant]
  14. LESCOL [Concomitant]
  15. TRICOR [Concomitant]

REACTIONS (5)
  - ANGINA UNSTABLE [None]
  - CORONARY ARTERY DISEASE [None]
  - CORONARY ARTERY OCCLUSION [None]
  - EJECTION FRACTION DECREASED [None]
  - ISCHAEMIC CARDIOMYOPATHY [None]
